FAERS Safety Report 7280533-3 (Version None)
Quarter: 2011Q1

REPORT INFORMATION
  Report Type: 
  Country: None (occurrence: None)
  Receive Date: 20110208
  Receipt Date: 20101228
  Transmission Date: 20110831
  Serious: Yes (Hospitalization, Other)
  Sender: FDA-Public Use
  Company Number: US-BAYER-201031772NA

PATIENT
  Sex: Female
  Weight: 86 kg

DRUGS (13)
  1. YASMIN [Suspect]
     Dosage: UNK
     Dates: start: 20070101, end: 20071101
  2. PREVACID [Concomitant]
     Dosage: 30 MG, UNK
  3. POTASSIUM [Concomitant]
  4. NSAID'S [Concomitant]
  5. BENTYL [Concomitant]
     Indication: MUSCLE SPASMS
  6. NASONEX [Concomitant]
     Dosage: UNK UNK, PRN
  7. ALBUTEROL [Concomitant]
     Dosage: UNK UNK, PRN
  8. AMITRIPTYLINE HCL [Concomitant]
     Dosage: UNK UNK, HS
  9. YASMIN [Suspect]
     Indication: PRODUCT USED FOR UNKNOWN INDICATION
     Dosage: UNK UNK, UNK
     Route: 065
     Dates: start: 20041201, end: 20070101
  10. BENTYL [Concomitant]
     Indication: PAIN
  11. RESPIRATORY SYSTEM [Concomitant]
  12. ALLEGRA-D [FEXOFENADINE HYDROCHLORIDE,PSEUDOEPHEDRINE] [Concomitant]
     Dosage: UNK UNK, PRN
  13. UNCODEABLE ^UNCLASSIFIABLE^ [Concomitant]
     Dosage: UNK, PRN

REACTIONS (9)
  - BILIARY DYSKINESIA [None]
  - FATIGUE [None]
  - ABDOMINAL PAIN [None]
  - CHOLECYSTITIS CHRONIC [None]
  - HEADACHE [None]
  - VOMITING [None]
  - ABDOMINAL PAIN UPPER [None]
  - DIARRHOEA [None]
  - NAUSEA [None]
